FAERS Safety Report 5572383-0 (Version None)
Quarter: 2007Q4

REPORT INFORMATION
  Report Type: 
  Country: None (occurrence: None)
  Receive Date: 20071219
  Receipt Date: 20071205
  Transmission Date: 20080405
  Serious: Yes (Life-Threatening, Hospitalization, Other)
  Sender: FDA-Public Use
  Company Number: 2007AL005293

PATIENT
  Age: 13 Year
  Sex: Female

DRUGS (5)
  1. DICLOFENAC SODIUM DELAYED-RELEASE TABLETS, 50 MG (PUREPAC) (DICLOFENAC [Suspect]
     Indication: ANALGESIA
     Dosage: 50 MG;RECT
     Route: 054
  2. HYDROCORTISONE [Concomitant]
  3. MESALAMINE [Concomitant]
  4. CEFOTAXIME [Concomitant]
  5. METRONIDAZOLE [Concomitant]

REACTIONS (6)
  - BLOOD POTASSIUM INCREASED [None]
  - HAEMODIALYSIS [None]
  - HAEMOGLOBIN DECREASED [None]
  - HAEMORRHAGIC INFARCTION [None]
  - RENAL IMPAIRMENT [None]
  - RENAL TUBULAR NECROSIS [None]
